FAERS Safety Report 5448609-0 (Version None)
Quarter: 2007Q3

REPORT INFORMATION
  Report Type: 
  Country: None (occurrence: None)
  Receive Date: 20070906
  Receipt Date: 20070906
  Transmission Date: 20080115
  Serious: Yes (Congenital Anomaly)
  Sender: FDA-Public Use
  Company Number: None

PATIENT
  Sex: Female
  Weight: 68.0396 kg

DRUGS (11)
  1. VALPROIC ACID [Suspect]
     Indication: EPILEPSY
     Dosage: 500 TWICE DAILY PO
     Route: 048
  2. VALPROIC ACID [Suspect]
     Indication: MIGRAINE
     Dosage: 500 TWICE DAILY PO
     Route: 048
  3. TOPIRAMATE [Suspect]
     Indication: EPILEPSY
     Dosage: 100 TWICE DAILY PO
     Route: 048
  4. TOPIRAMATE [Suspect]
     Indication: MIGRAINE
     Dosage: 100 TWICE DAILY PO
     Route: 048
  5. PRENATAL VITAMINS [Concomitant]
  6. FOLIC ACID [Concomitant]
  7. PROMETHAZINE [Concomitant]
  8. FAMOTIDINE [Concomitant]
  9. METOCLOPRAMIDE [Concomitant]
  10. DIPHENHYDRAMINE HCL [Concomitant]
  11. MIDRIN [Concomitant]

REACTIONS (2)
  - ANKYLOGLOSSIA CONGENITAL [None]
  - DRUG EXPOSURE DURING PREGNANCY [None]
